FAERS Safety Report 15558809 (Version 3)
Quarter: 2019Q4

REPORT INFORMATION
  Report Type: Report from Study
  Country: None (occurrence: CL)
  Receive Date: 20181029
  Receipt Date: 20191220
  Transmission Date: 20200122
  Serious: Yes (Other)
  Sender: FDA-Public Use
  Company Number: CL-ABBVIE-18K-034-2533925-00

PATIENT
  Age: 53 Year
  Sex: Female

DRUGS (1)
  1. HUMIRA [Suspect]
     Active Substance: ADALIMUMAB
     Indication: RHEUMATOID ARTHRITIS
     Route: 058
     Dates: start: 20150305

REACTIONS (5)
  - Large intestinal ulcer haemorrhage [Not Recovered/Not Resolved]
  - Large intestine polyp [Unknown]
  - Trigger finger [Not Recovered/Not Resolved]
  - Haemorrhoidal haemorrhage [Recovering/Resolving]
  - Pterygium [Not Recovered/Not Resolved]

NARRATIVE: CASE EVENT DATE: 20180918
